FAERS Safety Report 5380489-4 (Version None)
Quarter: 2007Q3

REPORT INFORMATION
  Report Type: 
  Country: None (occurrence: None)
  Receive Date: 20070706
  Receipt Date: 20070601
  Transmission Date: 20080115
  Serious: No
  Sender: FDA-Public Use
  Company Number: A0654124A

PATIENT
  Sex: Female

DRUGS (1)
  1. TYKERB [Suspect]

REACTIONS (1)
  - DIARRHOEA [None]
